FAERS Safety Report 22250884 (Version 1)
Quarter: 2023Q2

REPORT INFORMATION
  Report Type: Spontaneous
  Country: JP (occurrence: JP)
  Receive Date: 20230425
  Receipt Date: 20230425
  Transmission Date: 20230721
  Serious: Yes (Death, Other)
  Sender: FDA-Public Use
  Company Number: JP-BRISTOL-MYERS SQUIBB COMPANY-2023-057211

PATIENT
  Age: 8 Decade
  Sex: Male

DRUGS (2)
  1. YERVOY [Suspect]
     Active Substance: IPILIMUMAB
     Indication: Renal cell carcinoma
     Route: 041
  2. OPDIVO [Suspect]
     Active Substance: NIVOLUMAB
     Indication: Renal cell carcinoma
     Route: 041

REACTIONS (8)
  - Dermatitis psoriasiform [Unknown]
  - Abdominal distension [Unknown]
  - Immune-mediated hepatic disorder [Recovering/Resolving]
  - Ascites [Unknown]
  - Hyperglycaemia [Unknown]
  - Thyroxine free decreased [Unknown]
  - Fungal infection [Unknown]
  - Multiple organ dysfunction syndrome [Fatal]
